FAERS Safety Report 11108462 (Version 1)
Quarter: 2015Q2

REPORT INFORMATION
  Report Type: Spontaneous
  Country: JP (occurrence: JP)
  Receive Date: 20150513
  Receipt Date: 20150513
  Transmission Date: 20150821
  Serious: Yes (Other)
  Sender: FDA-Public Use
  Company Number: JP-CIPLA LTD.-2015JP03715

PATIENT

DRUGS (3)
  1. CARBOPLATIN. [Suspect]
     Active Substance: CARBOPLATIN
     Indication: NON-SMALL CELL LUNG CANCER
     Dosage: 6 AREA UNDER THE CURVE, DAY 1 IN A 3-WEEK CYCLE FOR UP TO SIX CYCLES.
  2. GEFITINIB [Suspect]
     Active Substance: GEFITINIB
     Indication: NON-SMALL CELL LUNG CANCER
     Dosage: 250 MG IN A 3-WEEK CYCLE FOR UP TO SIX CYCLES.
  3. PEMETREXED [Suspect]
     Active Substance: PEMETREXED
     Indication: NON-SMALL CELL LUNG CANCER
     Dosage: 500 MG/M2, DAY 1 IN A 3-WEEK CYCLE FOR UP TO SIX CYCLES.

REACTIONS (1)
  - Pneumonitis [Unknown]
